FAERS Safety Report 6301613-2 (Version None)
Quarter: 2009Q3

REPORT INFORMATION
  Report Type: 
  Country: None (occurrence: None)
  Receive Date: 20090807
  Receipt Date: 20090724
  Transmission Date: 20100115
  Serious: Yes (Hospitalization)
  Sender: FDA-Public Use
  Company Number: JP-GENENTECH-286714

PATIENT
  Sex: Male

DRUGS (1)
  1. AVASTIN [Suspect]
     Indication: RADIATION INJURY
     Dosage: 5 MG/KG, QD
     Route: 041
     Dates: start: 20090605, end: 20090605

REACTIONS (1)
  - CEREBRAL HAEMORRHAGE [None]
